FAERS Safety Report 8336561-X (Version None)
Quarter: 2012Q2

REPORT INFORMATION
  Report Type: 
  Country: None (occurrence: None)
  Receive Date: 20120504
  Receipt Date: 20120102
  Transmission Date: 20120825
  Serious: Yes (Other)
  Sender: FDA-Public Use
  Company Number: CA-JNJFOC-20120101429

PATIENT
  Sex: Female
  Weight: 110 kg

DRUGS (5)
  1. ACTONEL [Concomitant]
     Route: 048
  2. APO-TRIAZIDE [Concomitant]
     Indication: HYPERTENSION
     Route: 048
  3. CALCITE [Concomitant]
     Route: 048
  4. SIMPONI [Suspect]
     Indication: RHEUMATOID ARTHRITIS
     Route: 058
     Dates: start: 20110712, end: 20120102
  5. PREDNISONE TAB [Concomitant]
     Indication: ARTHRITIS
     Dates: start: 20090101

REACTIONS (1)
  - HERPES ZOSTER [None]
